FAERS Safety Report 12950638 (Version 1)
Quarter: 2016Q4

REPORT INFORMATION
  Report Type: Spontaneous
  Country: US (occurrence: US)
  Receive Date: 20161117
  Receipt Date: 20161117
  Transmission Date: 20170207
  Serious: Yes (Hospitalization)
  Sender: FDA-Public Use
  Company Number: None

PATIENT
  Age: 25 Year
  Sex: Male

DRUGS (2)
  1. ALPRAZOLAM. [Concomitant]
     Active Substance: ALPRAZOLAM
  2. TOBRAMYCIN 300MG [Suspect]
     Active Substance: TOBRAMYCIN
     Dosage: 300MG, BID, NEB
     Dates: start: 20161013

REACTIONS (1)
  - Hospitalisation [None]
